FAERS Safety Report 5168950-9 (Version None)
Quarter: 2006Q4

REPORT INFORMATION
  Report Type: 
  Country: None (occurrence: None)
  Receive Date: 20061211
  Receipt Date: 20061205
  Transmission Date: 20070319
  Serious: Yes (Hospitalization, Other)
  Sender: FDA-Public Use
  Company Number: 20060904732

PATIENT
  Age: 58 Year
  Sex: Female

DRUGS (6)
  1. COMBIVIR [Suspect]
     Indication: DRUG USE FOR UNKNOWN INDICATION
     Route: 048
     Dates: start: 19980101
  2. PROCRIT [Suspect]
     Route: 058
     Dates: start: 20010101
  3. CRIXIVAN [Suspect]
     Indication: DRUG USE FOR UNKNOWN INDICATION
     Route: 065
  4. AMITRIPTYLINE HCL [Concomitant]
  5. SERETIDE DISKUS MITE [Concomitant]
  6. ANTICHOLINERGICS [Concomitant]

REACTIONS (8)
  - ANAEMIA [None]
  - APLASIA PURE RED CELL [None]
  - BLOOD PRODUCT TRANSFUSION DEPENDENT [None]
  - HAEMOGLOBIN DECREASED [None]
  - HAEMOLYSIS [None]
  - HAEMOLYTIC ANAEMIA [None]
  - POLYCYTHAEMIA [None]
  - RETICULOCYTE COUNT DECREASED [None]
